FAERS Safety Report 7120914-1 (Version None)
Quarter: 2010Q4

REPORT INFORMATION
  Report Type: 
  Country: None (occurrence: None)
  Receive Date: 20101124
  Receipt Date: 20101116
  Transmission Date: 20110411
  Serious: Yes (Death, Hospitalization)
  Sender: FDA-Public Use
  Company Number: JP-SANOFI-AVENTIS-2010SA055459

PATIENT
  Age: 78 Year
  Sex: Male
  Weight: 56 kg

DRUGS (6)
  1. PLAVIX [Suspect]
     Indication: ACUTE CORONARY SYNDROME
     Dates: start: 20090206, end: 20100831
  2. ASPIRIN [Concomitant]
  3. AMLODIPINE [Concomitant]
     Dates: end: 20100923
  4. DIOVAN [Concomitant]
     Dates: end: 20100923
  5. MEVALOTIN [Concomitant]
     Dates: end: 20100923
  6. TAKEPRON [Concomitant]

REACTIONS (5)
  - BLOOD LACTATE DEHYDROGENASE INCREASED [None]
  - DISSEMINATED INTRAVASCULAR COAGULATION [None]
  - HAEMOLYTIC ANAEMIA [None]
  - PLATELET COUNT DECREASED [None]
  - PYREXIA [None]
